FAERS Safety Report 6986612-X (Version None)
Quarter: 2010Q3

REPORT INFORMATION
  Report Type: 
  Country: None (occurrence: None)
  Receive Date: 20100827
  Receipt Date: 20100112
  Transmission Date: 20110219
  Serious: Yes (Other)
  Sender: FDA-Public Use
  Company Number: AMAG201000027

PATIENT
  Age: 66 Year
  Sex: Female
  Weight: 62.2 kg

DRUGS (8)
  1. FERAHEME [Suspect]
     Indication: IRON DEFICIENCY ANAEMIA
     Dosage: 510 MG, SINGLE, INTRAVENOUS
     Route: 042
     Dates: start: 20091230, end: 20091230
  2. FERAHEME [Suspect]
     Indication: RENAL FAILURE CHRONIC
     Dosage: 510 MG, SINGLE, INTRAVENOUS
     Route: 042
     Dates: start: 20091230, end: 20091230
  3. OMEPRAZOLE [Concomitant]
  4. MOBIC [Concomitant]
  5. OTHER NUTRIENTS [Concomitant]
  6. MULTIVITAMIN [Concomitant]
  7. B COMPLEX (NICOTINAMIDE, PYRIDOXINE HYDROCHLORIDE, RIBOFLAVIN, THIAMIN [Concomitant]
  8. VITAMIN E (TOCOPHERYL ACETATE) [Concomitant]

REACTIONS (2)
  - HYPOTENSION [None]
  - PRURITUS [None]
